FAERS Safety Report 5206834-8 (Version None)
Quarter: 2006Q4

REPORT INFORMATION
  Report Type: 
  Country: None (occurrence: None)
  Receive Date: 20061026
  Receipt Date: 20060823
  Transmission Date: 20070319
  Serious: No
  Sender: FDA-Public Use
  Company Number: 2006102791

PATIENT
  Age: 77 Year
  Sex: Female
  Weight: 65.7716 kg

DRUGS (6)
  1. LYRICA [Suspect]
     Indication: NEUROPATHY
     Dosage: 75 MG (75 MG)
     Dates: start: 20060822
  2. ULTRAM [Concomitant]
  3. AVAPRO [Concomitant]
  4. TOPROL-XL [Concomitant]
  5. VITAMIN B6 [Concomitant]
  6. NORVASC [Concomitant]

REACTIONS (3)
  - DISORIENTATION [None]
  - DIZZINESS [None]
  - NERVOUSNESS [None]
